FAERS Safety Report 23088992 (Version 2)
Quarter: 2023Q4

REPORT INFORMATION
  Report Type: Spontaneous
  Country: BR (occurrence: BR)
  Receive Date: 20231020
  Receipt Date: 20231122
  Transmission Date: 20240110
  Serious: Yes (Other)
  Sender: FDA-Public Use
  Company Number: BR-PFIZER INC-PV202300171981

PATIENT
  Age: 72 Year
  Sex: Male
  Weight: 97 kg

DRUGS (10)
  1. INLYTA [Suspect]
     Active Substance: AXITINIB
     Indication: Renal cancer metastatic
     Dosage: 2 TABLETS A DAY
     Dates: start: 202309
  2. ATACAND [Concomitant]
     Active Substance: CANDESARTAN CILEXETIL
     Indication: Blood pressure abnormal
     Dosage: 8 MG, DAILY
  3. DAPAGLIFLOZIN [Concomitant]
     Active Substance: DAPAGLIFLOZIN
     Indication: Diabetes mellitus
     Dosage: 5 MG, DAILY
  4. JANUVIA [Concomitant]
     Active Substance: SITAGLIPTIN PHOSPHATE
     Dosage: 1 TABLET DAILY IN THE EVENING
  5. JANUVIA [Concomitant]
     Active Substance: SITAGLIPTIN PHOSPHATE
     Dosage: 30 MG, 2X/DAY (1 TABLET DAILY IN THE MORNING AND EVENING)
  6. ELIQUIS [Concomitant]
     Active Substance: APIXABAN
     Indication: Anticoagulant therapy
     Dosage: 1 TABLET DAILY IN THE MORNING AND NIGHT
  7. MONOCORDIL [Concomitant]
     Active Substance: ISOSORBIDE MONONITRATE
     Indication: Anticoagulant therapy
     Dosage: 1 TABLET IN THE MORNING
  8. PATZ [Concomitant]
     Indication: Insomnia
     Dosage: 1 TABLET DAILY BEFORE BED
  9. LIVALO [Concomitant]
     Active Substance: PITAVASTATIN CALCIUM
     Indication: Blood cholesterol abnormal
     Dosage: 2 DAILY TABLET IN THE EVENING
  10. BUPRENORPHINE [Concomitant]
     Active Substance: BUPRENORPHINE
     Indication: Pain
     Dosage: USES THE PATCH ON THE BODY ONCE A WEEK

REACTIONS (4)
  - Faecaloma [Recovering/Resolving]
  - Asthenia [Unknown]
  - Pain [Recovered/Resolved]
  - Nausea [Recovered/Resolved]
